FAERS Safety Report 25762861 (Version 2)
Quarter: 2025Q3

REPORT INFORMATION
  Report Type: Report from Study
  Country: JP (occurrence: JP)
  Receive Date: 20250904
  Receipt Date: 20250930
  Transmission Date: 20251020
  Serious: Yes (Other)
  Sender: TAKEDA
  Company Number: JP-TAKEDA-2025TJP008954

PATIENT
  Age: 9 Decade

DRUGS (1)
  1. SUSOCTOCOG ALFA [Suspect]
     Active Substance: SUSOCTOCOG ALFA
     Indication: Factor VIII deficiency

REACTIONS (2)
  - Factor VIII activity decreased [Recovered/Resolved]
  - Cholecystitis [Not Recovered/Not Resolved]
